FAERS Safety Report 9414329 (Version 1)
Quarter: 2013Q3

REPORT INFORMATION
  Report Type: Spontaneous
  Country: US (occurrence: US)
  Receive Date: 20130723
  Receipt Date: 20130723
  Transmission Date: 20140515
  Serious: Yes (Other)
  Sender: FDA-Public Use
  Company Number: US-ROCHE-1251177

PATIENT
  Sex: Male

DRUGS (1)
  1. KLONOPIN [Suspect]
     Indication: PANIC DISORDER
     Dosage: 0.5 MG TABLET 3-4 TIMES A DAY
     Route: 048

REACTIONS (3)
  - Tongue neoplasm malignant stage unspecified [Recovered/Resolved]
  - Drug effect decreased [Unknown]
  - Radiation injury [Not Recovered/Not Resolved]
